FAERS Safety Report 11317315 (Version 1)
Quarter: 2015Q3

REPORT INFORMATION
  Report Type: Spontaneous
  Country: US (occurrence: US)
  Receive Date: 20150728
  Receipt Date: 20150728
  Transmission Date: 20151125
  Serious: Yes (Hospitalization, Other)
  Sender: FDA-Public Use
  Company Number: US-SHIRE-US201508673

PATIENT
  Age: 67 Year
  Sex: Female

DRUGS (1)
  1. 476 (MESALAZINE/MESALAMINE) [Suspect]
     Active Substance: MESALAMINE
     Indication: CROHN^S DISEASE
     Dosage: UNK, UNKNOWN
     Route: 048

REACTIONS (8)
  - Therapeutic response unexpected [Unknown]
  - Product use issue [Unknown]
  - Haematuria [Recovered/Resolved]
  - Pancreatitis chronic [Recovering/Resolving]
  - Nephrolithiasis [Recovering/Resolving]
  - Flank pain [Recovered/Resolved]
  - Steatorrhoea [Recovering/Resolving]
  - Bowel movement irregularity [Recovering/Resolving]
